FAERS Safety Report 9432463 (Version 3)
Quarter: 2014Q1

REPORT INFORMATION
  Report Type: Spontaneous
  Country: JP (occurrence: JP)
  Receive Date: 20130731
  Receipt Date: 20140114
  Transmission Date: 20141002
  Serious: Yes (Other)
  Sender: FDA-Public Use
  Company Number: JP-AMGEN-JPNSP2013053395

PATIENT
  Age: 60 Year
  Sex: Male
  Weight: 54.8 kg

DRUGS (5)
  1. ENBREL [Suspect]
     Indication: RHEUMATOID ARTHRITIS
     Dosage: 25 MG, UNK
     Route: 058
     Dates: start: 201102, end: 20120119
  2. METHOTREXATE [Concomitant]
     Indication: RHEUMATOID ARTHRITIS
     Dosage: 8 MG, WEEKLY
     Dates: end: 20120119
  3. PREDNISOLONE [Concomitant]
     Indication: RHEUMATOID ARTHRITIS
     Dosage: 7.5 MG, 1X/DAY
     Dates: end: 20120119
  4. PREDNISOLONE [Concomitant]
     Dosage: 20 MG, UNK
     Dates: start: 201203
  5. FOLIAMIN [Concomitant]
     Indication: RHEUMATOID ARTHRITIS
     Dosage: 5 MG, WEEKLY
     Dates: end: 20120119

REACTIONS (2)
  - Systemic lupus erythematosus [Recovering/Resolving]
  - Raynaud^s phenomenon [Unknown]
